FAERS Safety Report 13539333 (Version 1)
Quarter: 2017Q2

REPORT INFORMATION
  Report Type: Spontaneous
  Country: SI (occurrence: SI)
  Receive Date: 20170512
  Receipt Date: 20170512
  Transmission Date: 20170830
  Serious: Yes (Hospitalization, Other)
  Sender: FDA-Public Use
  Company Number: SI-ABBVIE-17K-261-1969465-00

PATIENT
  Age: 78 Year
  Sex: Female
  Weight: 65 kg

DRUGS (1)
  1. DUODOPA [Suspect]
     Active Substance: CARBIDOPA\LEVODOPA
     Indication: PARKINSON^S DISEASE
     Route: 050
     Dates: start: 20130509, end: 20170414

REACTIONS (3)
  - Peritonitis [Recovering/Resolving]
  - Device dislocation [Recovering/Resolving]
  - Stoma site hypergranulation [Recovering/Resolving]

NARRATIVE: CASE EVENT DATE: 20170329
